FAERS Safety Report 19648294 (Version 3)
Quarter: 2021Q3

REPORT INFORMATION
  Report Type: Report from Study
  Country: CA (occurrence: CA)
  Receive Date: 20210802
  Receipt Date: 20210920
  Transmission Date: 20211014
  Serious: Yes (Hospitalization, Other)
  Sender: FDA-Public Use
  Company Number: CA-OTSUKA-2021_026367

PATIENT
  Age: 81 Year
  Sex: Male

DRUGS (2)
  1. CEDAZURIDINE AND DECITABINE [Suspect]
     Active Substance: CEDAZURIDINE\DECITABINE
     Dosage: (35 MG DECITABINE AND 100 MG CEDAZURIDINE)
     Route: 065
     Dates: start: 202109
  2. CEDAZURIDINE AND DECITABINE [Suspect]
     Active Substance: CEDAZURIDINE\DECITABINE
     Indication: MYELODYSPLASTIC SYNDROME
     Dosage: (35 MG DECITABINE AND 100 MG CEDAZURIDINE)
     Route: 065
     Dates: start: 20210614

REACTIONS (9)
  - Pyrexia [Unknown]
  - Transfusion [Unknown]
  - Asthenia [Unknown]
  - Haemoglobin abnormal [Unknown]
  - Fall [Unknown]
  - Head injury [Unknown]
  - Pneumonia [Unknown]
  - Limb injury [Unknown]
  - Fatigue [Unknown]

NARRATIVE: CASE EVENT DATE: 202107
